FAERS Safety Report 10239963 (Version 1)
Quarter: 2014Q2

REPORT INFORMATION
  Report Type: Spontaneous
  Country: US (occurrence: US)
  Receive Date: 20140616
  Receipt Date: 20140616
  Transmission Date: 20141212
  Serious: No
  Sender: FDA-Public Use
  Company Number: US-009507513-1406USA001504

PATIENT
  Sex: Female

DRUGS (3)
  1. ASMANEX TWISTHALER [Suspect]
     Indication: ASTHMA
     Dosage: 1 INHALATION AT BEDTIME
     Route: 055
     Dates: start: 20140416, end: 20140523
  2. PROVENTIL [Concomitant]
     Route: 055
  3. PROAIR (ALBUTEROL SULFATE) [Concomitant]

REACTIONS (4)
  - Vomiting [Unknown]
  - Cough [Unknown]
  - Drug administration error [Unknown]
  - Incorrect dosage administered [Unknown]
